FAERS Safety Report 9438176 (Version 1)
Quarter: 2013Q3

REPORT INFORMATION
  Report Type: Spontaneous
  Country: US (occurrence: US)
  Receive Date: 20130802
  Receipt Date: 20130802
  Transmission Date: 20140515
  Serious: No
  Sender: FDA-Public Use
  Company Number: US-BRISTOL-MYERS SQUIBB COMPANY-16937864

PATIENT
  Age: 35 Year
  Sex: Female

DRUGS (2)
  1. WARFARIN SODIUM [Suspect]
     Dosage: 10MG:13AUG-13AUG2012,DECREASED TO 5MG,INCREASED TO 7.5MG
     Dates: start: 20120813
  2. ENOXAPARIN SODIUM [Suspect]
     Indication: DEEP VEIN THROMBOSIS
     Dates: start: 20120814

REACTIONS (2)
  - Pain in extremity [Not Recovered/Not Resolved]
  - International normalised ratio decreased [Unknown]
